FAERS Safety Report 11610855 (Version 1)
Quarter: 2015Q4

REPORT INFORMATION
  Report Type: Spontaneous
  Country: BR (occurrence: BR)
  Receive Date: 20151008
  Receipt Date: 20151008
  Transmission Date: 20160304
  Serious: Yes (Hospitalization, Other)
  Sender: FDA-Public Use
  Company Number: BR-TORRENT-00003134

PATIENT
  Age: 57 Year
  Sex: Female
  Weight: 72 kg

DRUGS (6)
  1. PAMELOR [Concomitant]
     Active Substance: NORTRIPTYLINE HYDROCHLORIDE
     Indication: DEPRESSION
     Dosage: TWICE DAILY/ ORAL
     Route: 048
     Dates: start: 2010
  2. RIVOTRIL [Concomitant]
     Active Substance: CLONAZEPAM
     Indication: SEDATIVE THERAPY
     Dosage: ONCE DAILY/ ORAL
     Route: 048
     Dates: start: 2010
  3. CLOXAZOLAM [Concomitant]
     Active Substance: CLOXAZOLAM
     Indication: DEPRESSION
     Dosage: DOSE NUMBER IS UNKNOWN/ NUMBER OF UNITS IN INTERVAL IS UNKNOW/ ORAL
     Route: 048
     Dates: end: 201509
  4. PANTOPRAZOLE [Concomitant]
     Active Substance: PANTOPRAZOLE SODIUM
     Indication: GASTRITIS
     Dosage: ONCE DAILY/ ORAL
     Route: 048
     Dates: start: 2004
  5. VENLIFT OD [Suspect]
     Active Substance: VENLAFAXINE HYDROCHLORIDE
     Indication: DEPRESSION
     Dosage: ONCE DAILY/ ORAL
     Route: 048
     Dates: start: 2013
  6. MELLERIL [Concomitant]
     Indication: DEPRESSION
     Dosage: ONCE DAILY/ ORAL
     Route: 048
     Dates: start: 2010

REACTIONS (12)
  - Dysuria [Not Recovered/Not Resolved]
  - Head discomfort [Not Recovered/Not Resolved]
  - Osteopenia [Not Recovered/Not Resolved]
  - Spinal pain [Not Recovered/Not Resolved]
  - Peripheral swelling [Not Recovered/Not Resolved]
  - Tremor [Not Recovered/Not Resolved]
  - Cold sweat [Not Recovered/Not Resolved]
  - Headache [Not Recovered/Not Resolved]
  - Spinal fracture [Not Recovered/Not Resolved]
  - Blood cholesterol increased [Not Recovered/Not Resolved]
  - Urine output decreased [Not Recovered/Not Resolved]
  - Blood triglycerides increased [None]

NARRATIVE: CASE EVENT DATE: 2014
